FAERS Safety Report 9841358 (Version 1)
Quarter: 2014Q1

REPORT INFORMATION
  Report Type: Spontaneous
  Country: US (occurrence: US)
  Receive Date: 20140124
  Receipt Date: 20140124
  Transmission Date: 20141002
  Serious: No
  Sender: FDA-Public Use
  Company Number: US-BAYER-2014-010358

PATIENT
  Age: 2 Year
  Sex: Female

DRUGS (1)
  1. MIDOL EXTENDED RELIEF CAPLET [Suspect]
     Dosage: 1 DF, ONCE
     Route: 048

REACTIONS (1)
  - Accidental exposure to product by child [None]
